FAERS Safety Report 8287443-3 (Version None)
Quarter: 2012Q2

REPORT INFORMATION
  Report Type: 
  Country: None (occurrence: None)
  Receive Date: 20120410
  Receipt Date: 20120410
  Transmission Date: 20120825
  Serious: Yes (Other)
  Sender: FDA-Public Use
  Company Number: None

PATIENT
  Age: 67 Year
  Sex: Female
  Weight: 81.6475 kg

DRUGS (1)
  1. LEVOFLOXACIN [Suspect]
     Indication: SINUSITIS
     Dosage: 500 MG ONCE DAILY ORAL
     Route: 048
     Dates: start: 20120218, end: 20120222

REACTIONS (4)
  - CREPITATIONS [None]
  - HYPOAESTHESIA [None]
  - ARTHRALGIA [None]
  - WALKING AID USER [None]
